FAERS Safety Report 6069420-6 (Version None)
Quarter: 2009Q1

REPORT INFORMATION
  Report Type: 
  Country: None (occurrence: None)
  Receive Date: 20090206
  Receipt Date: 20090126
  Transmission Date: 20090719
  Serious: Yes (Other)
  Sender: FDA-Public Use
  Company Number: CA-PFIZER INC-2009165995

PATIENT

DRUGS (2)
  1. ZELDOX [Suspect]
     Dosage: 40 MG, UNK
     Route: 048
     Dates: start: 20090121
  2. CIPRALEX [Concomitant]
     Dosage: 20 MG, UNK

REACTIONS (2)
  - PANIC ATTACK [None]
  - SUICIDAL IDEATION [None]
